FAERS Safety Report 5531968-8 (Version None)
Quarter: 2007Q4

REPORT INFORMATION
  Report Type: 
  Country: None (occurrence: None)
  Receive Date: 20071128
  Receipt Date: 20071128
  Transmission Date: 20080405
  Serious: No
  Sender: FDA-Public Use
  Company Number: None

PATIENT
  Age: 3 Year
  Sex: Female
  Weight: 19.5047 kg

DRUGS (4)
  1. VIGAMOX [Suspect]
     Indication: CONJUNCTIVITIS
     Dosage: 1-2 DROPS  TWICE A DAY  OPHTHALMIC  (DURATION: 2 DOSES)
     Route: 047
     Dates: start: 20071121, end: 20071121
  2. SINGULAIR [Concomitant]
  3. M.V.I. [Concomitant]
  4. PULMICORT [Concomitant]

REACTIONS (5)
  - CONJUNCTIVAL HAEMORRHAGE [None]
  - EYE DISCHARGE [None]
  - EYELID OEDEMA [None]
  - PURULENT DISCHARGE [None]
  - SKIN DISCOLOURATION [None]
